FAERS Safety Report 10666578 (Version 3)
Quarter: 2015Q1

REPORT INFORMATION
  Report Type: Report from Study
  Country: US (occurrence: US)
  Receive Date: 20141221
  Receipt Date: 20150108
  Transmission Date: 20150720
  Serious: Yes (Death, Hospitalization, Other)
  Sender: FDA-Public Use
  Company Number: US-MYLANLABS-2014SP001035

PATIENT
  Age: 60 Year
  Sex: Male
  Weight: 76.46 kg

DRUGS (7)
  1. CYTARABINE. [Suspect]
     Active Substance: CYTARABINE
     Route: 042
  2. MITOXANTRONE [Suspect]
     Active Substance: MITOXANTRONE HYDROCHLORIDE
     Indication: ACUTE LYMPHOCYTIC LEUKAEMIA
     Route: 042
  3. FLUDARABINE [Suspect]
     Active Substance: FLUDARABINE PHOSPHATE
     Indication: ACUTE LYMPHOCYTIC LEUKAEMIA
     Route: 042
     Dates: start: 20140124, end: 20140128
  4. CYTARABINE. [Suspect]
     Active Substance: CYTARABINE
     Indication: ACUTE LYMPHOCYTIC LEUKAEMIA
     Route: 042
     Dates: start: 20140123, end: 20140128
  5. CYTARABINE. [Suspect]
     Active Substance: CYTARABINE
     Route: 042
  6. INOTUZUMAB OZOGAMICIN [Suspect]
     Active Substance: INOTUZUMAB OZOGAMICIN
     Indication: ACUTE LYMPHOCYTIC LEUKAEMIA
     Route: 042
  7. FILGRASTIM [Suspect]
     Active Substance: FILGRASTIM
     Indication: ACUTE LYMPHOCYTIC LEUKAEMIA
     Route: 058
     Dates: start: 20140129, end: 20140217

REACTIONS (3)
  - Disease progression [Fatal]
  - Respiratory failure [Not Recovered/Not Resolved]
  - Hypoxia [Not Recovered/Not Resolved]

NARRATIVE: CASE EVENT DATE: 20140216
